FAERS Safety Report 6428210-2 (Version None)
Quarter: 2009Q4

REPORT INFORMATION
  Report Type: 
  Country: None (occurrence: None)
  Receive Date: 20091105
  Receipt Date: 20091022
  Transmission Date: 20100525
  Serious: Yes (Hospitalization)
  Sender: FDA-Public Use
  Company Number: BE-ROCHE-664882

PATIENT
  Sex: Female

DRUGS (9)
  1. CAPECITABINE [Suspect]
     Indication: BREAST CANCER
     Route: 048
     Dates: start: 20081008, end: 20081110
  2. WX-671 [Suspect]
     Indication: BREAST CANCER
     Dosage: DOSE BLINDED.
     Route: 048
     Dates: start: 20081008, end: 20081110
  3. NULYTELY [Concomitant]
  4. ALDACTAZIDE [Concomitant]
  5. LEVOTHYROXINE SODIUM [Concomitant]
  6. BONDRONAT [Concomitant]
  7. LIPANTHYL [Concomitant]
  8. MS CONTIN [Concomitant]
  9. GLUCOPHAGE [Concomitant]

REACTIONS (3)
  - FATIGUE [None]
  - HAEMOLYTIC ANAEMIA [None]
  - HYPERBILIRUBINAEMIA [None]
